FAERS Safety Report 9975984 (Version 1)
Quarter: 2014Q1

REPORT INFORMATION
  Report Type: Spontaneous
  Country: US (occurrence: US)
  Receive Date: 20140306
  Receipt Date: 20140306
  Transmission Date: 20141002
  Serious: No
  Sender: FDA-Public Use
  Company Number: US-PFIZER INC-2014063766

PATIENT
  Age: 57 Year
  Sex: Male
  Weight: 72.56 kg

DRUGS (5)
  1. LYRICA [Suspect]
     Indication: DIABETIC NEUROPATHY
     Dosage: 100 MG, 3X/DAY
     Route: 048
     Dates: start: 201401, end: 201402
  2. INSULIN [Concomitant]
     Indication: DIABETES MELLITUS
     Dosage: UNK
  3. MIRTAZAPINE [Concomitant]
     Indication: DEPRESSION
     Dosage: 7.5 MG, 1X/DAY
  4. CELEXA [Concomitant]
     Indication: DEPRESSION
     Dosage: 40 MG, UNK
  5. PLAVIX [Concomitant]
     Dosage: UNK

REACTIONS (1)
  - Pain [Unknown]
